FAERS Safety Report 6120784-4 (Version None)
Quarter: 2009Q1

REPORT INFORMATION
  Report Type: 
  Country: None (occurrence: None)
  Receive Date: 20090312
  Receipt Date: 20090303
  Transmission Date: 20090719
  Serious: Yes (Other)
  Sender: FDA-Public Use
  Company Number: 2008SP022303

PATIENT

DRUGS (1)
  1. DESLORATADINE [Suspect]
     Indication: URTICARIA
     Dosage: QD
     Dates: start: 20070701, end: 20081001

REACTIONS (2)
  - GILBERT'S SYNDROME [None]
  - HAEMATOCRIT INCREASED [None]
